FAERS Safety Report 7060166-4 (Version None)
Quarter: 2010Q4

REPORT INFORMATION
  Report Type: 
  Country: None (occurrence: None)
  Receive Date: 20101025
  Receipt Date: 20101020
  Transmission Date: 20110411
  Serious: Yes (Death, Other)
  Sender: FDA-Public Use
  Company Number: PHHY2010CA70510

PATIENT
  Sex: Female

DRUGS (1)
  1. SANDOSTATIN LAR [Suspect]
     Indication: SUBILEUS
     Dosage: 20 MG EVERY 4 WEEKS
     Route: 030
     Dates: start: 20100226, end: 20100401

REACTIONS (3)
  - COLOSTOMY [None]
  - DRUG INEFFECTIVE [None]
  - RENAL FAILURE [None]
